FAERS Safety Report 19141959 (Version 2)
Quarter: 2021Q3

REPORT INFORMATION
  Report Type: Spontaneous
  Country: RU (occurrence: RU)
  Receive Date: 20210415
  Receipt Date: 20210713
  Transmission Date: 20211014
  Serious: Yes (Other)
  Sender: FDA-Public Use
  Company Number: RU-TEVA-2021-RU-1900221

PATIENT
  Age: 34 Year
  Sex: Female

DRUGS (1)
  1. FLUCONASOL [Suspect]
     Active Substance: FLUCONAZOLE
     Route: 065

REACTIONS (1)
  - Toxic skin eruption [Recovering/Resolving]
